FAERS Safety Report 23831142 (Version 2)
Quarter: 2024Q2

REPORT INFORMATION
  Report Type: Report from Study
  Country: CA (occurrence: CA)
  Receive Date: 20240508
  Receipt Date: 20240527
  Transmission Date: 20240716
  Serious: Yes (Death, Hospitalization, Other)
  Sender: FDA-Public Use
  Company Number: CA-002147023-NVSC2019CA062844

PATIENT
  Age: 81 Year
  Sex: Male

DRUGS (1)
  1. ERELZI [Suspect]
     Active Substance: ETANERCEPT-SZZS
     Indication: Ankylosing spondylitis
     Dosage: 50 MG, QW
     Route: 058
     Dates: start: 20181008

REACTIONS (5)
  - Death [Fatal]
  - Renal impairment [Unknown]
  - Fall [Unknown]
  - Feeding disorder [Unknown]
  - Cystitis [Unknown]

NARRATIVE: CASE EVENT DATE: 20240501
